FAERS Safety Report 15284725 (Version 3)
Quarter: 2018Q3

REPORT INFORMATION
  Report Type: Spontaneous
  Country: CH (occurrence: CH)
  Receive Date: 20180816
  Receipt Date: 20180824
  Transmission Date: 20181010
  Serious: Yes (Other)
  Sender: FDA-Public Use
  Company Number: CH-REGENERON PHARMACEUTICALS, INC.-2018-28305

PATIENT

DRUGS (2)
  1. EYLEA [Suspect]
     Active Substance: AFLIBERCEPT
     Indication: PRODUCT USED FOR UNKNOWN INDICATION
     Dosage: UNK
     Route: 031
     Dates: start: 20180619
  2. EYLEA [Suspect]
     Active Substance: AFLIBERCEPT
     Dosage: 2 INJECTIONS WITHIN THE LAST 6 MONTHS PRIOR TO THE REPORTED ENDOPHTHALMITIS
     Route: 031

REACTIONS (3)
  - Retinal oedema [Unknown]
  - Injection site inflammation [Recovering/Resolving]
  - Wrong technique in product usage process [Unknown]

NARRATIVE: CASE EVENT DATE: 20180620
